FAERS Safety Report 7993938-X (Version None)
Quarter: 2011Q4

REPORT INFORMATION
  Report Type: 
  Country: None (occurrence: None)
  Receive Date: 20111220
  Receipt Date: 20111206
  Transmission Date: 20120403
  Serious: Yes (Other)
  Sender: FDA-Public Use
  Company Number: NL-AMGEN-NLDSP2011058262

PATIENT
  Age: 65 Year
  Sex: Female
  Weight: 57 kg

DRUGS (3)
  1. PLAQUENIL [Concomitant]
     Dosage: UNK
  2. ENBREL [Suspect]
     Indication: RHEUMATOID ARTHRITIS
     Dosage: 50 MG, WEEKLY
     Dates: start: 20101124, end: 20111026
  3. SULFASALAZINE [Concomitant]
     Dosage: UNK

REACTIONS (5)
  - NERVE COMPRESSION [None]
  - CYSTITIS [None]
  - HORMONE LEVEL ABNORMAL [None]
  - PARAESTHESIA [None]
  - ECZEMA [None]
